FAERS Safety Report 4597137-3 (Version None)
Quarter: 2005Q1

REPORT INFORMATION
  Report Type: 
  Country: None (occurrence: None)
  Receive Date: 20050301
  Receipt Date: 20050214
  Transmission Date: 20050727
  Serious: Yes (Hospitalization)
  Sender: FDA-Public Use
  Company Number: F01200500177

PATIENT
  Age: 63 Year
  Sex: Male

DRUGS (5)
  1. (OXALIPLATIN) - SOLUTION - 130 MG [Suspect]
     Indication: NON-SMALL CELL LUNG CANCER STAGE IV
     Dosage: 130 MG (85 MG/M2 ON DAY 1 AND DAY 15, EVERY 4 WEEKS); 2 HOURS - TIME TO ONSET : 2 WEEKS
     Route: 042
     Dates: start: 20050105, end: 20050105
  2. (GEMCITABINE) - SOLUTION - 1900 MG [Suspect]
     Dosage: 1900 MG (1200 MG/M2 AS FLAT RATE INFUSION AT 10 MG/M2/MIN ON DAY 1 AND DAY 15, EVERY 4 WEEKS); 1 DAY
     Dates: start: 20050105, end: 20050105
  3. OFLEN (DICLOFENAC SODIUM) [Concomitant]
  4. LANSOPRAZOLE [Concomitant]
  5. FENTANYL [Concomitant]

REACTIONS (3)
  - ACUTE ABDOMEN [None]
  - JEJUNAL PERFORATION [None]
  - METASTATIC NEOPLASM [None]
